FAERS Safety Report 18478052 (Version 2)
Quarter: 2020Q4

REPORT INFORMATION
  Report Type: Other
  Country: JP (occurrence: JP)
  Receive Date: 20201108
  Receipt Date: 20201113
  Transmission Date: 20210114
  Serious: Yes (Death)
  Sender: FDA-Public Use
  Company Number: JP-ROCHE-2709977

PATIENT
  Age: 50 Year
  Sex: Female

DRUGS (5)
  1. EXEMESTANE. [Concomitant]
     Active Substance: EXEMESTANE
     Indication: INVASIVE LOBULAR BREAST CARCINOMA
  2. PACLITAXEL. [Concomitant]
     Active Substance: PACLITAXEL
     Indication: INVASIVE LOBULAR BREAST CARCINOMA
     Dosage: DOSAGE IS UNCERTAIN.
     Route: 041
  3. PALBOCICLIB [Concomitant]
     Active Substance: PALBOCICLIB
  4. AVASTIN [Suspect]
     Active Substance: BEVACIZUMAB
     Indication: INVASIVE LOBULAR BREAST CARCINOMA
     Dosage: 3 COURSES OF WEEKLY
     Route: 041
  5. FULVESTRANT. [Concomitant]
     Active Substance: FULVESTRANT

REACTIONS (2)
  - Lymphangiosis carcinomatosa [Fatal]
  - Anaemia [Unknown]
